FAERS Safety Report 10038876 (Version 2)
Quarter: 2014Q2

REPORT INFORMATION
  Report Type: Spontaneous
  Country: FR (occurrence: FR)
  Receive Date: 20140326
  Receipt Date: 20140403
  Transmission Date: 20141212
  Serious: Yes (Hospitalization)
  Sender: FDA-Public Use
  Company Number: FR-GLAXOSMITHKLINE-B0978538A

PATIENT
  Age: 49 Year
  Sex: Male

DRUGS (4)
  1. LAMICTAL [Suspect]
     Indication: PARTIAL SEIZURES
     Route: 048
     Dates: end: 20140217
  2. RENITEC [Suspect]
     Indication: HYPERTENSION
     Route: 048
     Dates: end: 20140217
  3. VALIUM [Suspect]
     Indication: PARTIAL SEIZURES
     Route: 048
     Dates: end: 20140217
  4. LARGACTIL [Suspect]
     Indication: PARTIAL SEIZURES
     Route: 048
     Dates: end: 20140217

REACTIONS (6)
  - Hypotension [Recovered/Resolved]
  - Oxygen consumption increased [Recovered/Resolved]
  - Hypoxia [Recovered/Resolved]
  - Oxygen saturation decreased [Recovered/Resolved]
  - Intentional overdose [Unknown]
  - Lung disorder [Unknown]
